FAERS Safety Report 8032352-8 (Version None)
Quarter: 2012Q1

REPORT INFORMATION
  Report Type: 
  Country: None (occurrence: None)
  Receive Date: 20120109
  Receipt Date: 20120109
  Transmission Date: 20120608
  Serious: Yes (Hospitalization)
  Sender: FDA-Public Use
  Company Number: None

PATIENT
  Age: 52 Year
  Sex: Male
  Weight: 111.4 kg

DRUGS (2)
  1. MELOXICAM [Suspect]
     Indication: ARTHRITIS
     Dosage: 15 MG EVERY DAY PO
     Route: 048
     Dates: start: 20090729, end: 20111104
  2. MELOXICAM [Suspect]
     Indication: PAIN
     Dosage: 15 MG EVERY DAY PO
     Route: 048
     Dates: start: 20090729, end: 20111104

REACTIONS (1)
  - LOWER GASTROINTESTINAL HAEMORRHAGE [None]
